FAERS Safety Report 8350423 (Version 2)
Quarter: 2012Q4

REPORT INFORMATION
  Report Type: 
  Country: US (occurrence: US)
  Receive Date: 20120124
  Receipt Date: 20120924
  Transmission Date: 20130627
  Serious: Yes (Hospitalization)
  Sender: FDA-Public Use
  Company Number: US-BAYER-2012-004957

PATIENT
  Age: 42 Year
  Sex: Female
  Weight: 78.01 kg

DRUGS (7)
  1. YAZ [Suspect]
     Indication: CONTRACEPTION
     Dosage: UNK
     Dates: start: 20080110, end: 201007
  2. YAZ [Suspect]
     Indication: HORMONE LEVEL ABNORMAL
  3. GIANVI [Suspect]
     Indication: CONTRACEPTION
     Dosage: UNK
     Dates: start: 201009, end: 201012
  4. GIANVI [Suspect]
     Indication: HORMONE LEVEL ABNORMAL
  5. ALBUTEROL [Concomitant]
  6. VENLAFAXINE HYDROCHLORIDE [Concomitant]
     Dosage: 75 mg, daily
  7. PROAIR HFA [Concomitant]
     Dosage: 90 mcg, 2 puffs every 4 hours

REACTIONS (5)
  - Deep vein thrombosis [None]
  - Injury [None]
  - Pain in extremity [None]
  - Oedema peripheral [None]
  - Anxiety [None]
